FAERS Safety Report 6872303-2 (Version None)
Quarter: 2010Q3

REPORT INFORMATION
  Report Type: 
  Country: None (occurrence: None)
  Receive Date: 20100723
  Receipt Date: 20100711
  Transmission Date: 20110219
  Serious: Yes (Hospitalization)
  Sender: FDA-Public Use
  Company Number: PHHY2010US45794

PATIENT
  Age: 47 Year
  Sex: Female

DRUGS (16)
  1. NEORAL [Suspect]
     Indication: RENAL TRANSPLANT
     Dosage: 100 MG, QD
     Route: 048
     Dates: start: 19970106, end: 20100607
  2. NEORAL [Suspect]
     Indication: PROPHYLAXIS AGAINST TRANSPLANT REJECTION
  3. SEVELAMER [Concomitant]
     Indication: BLOOD PHOSPHORUS INCREASED
     Dosage: 2400 MG, QD
     Route: 048
     Dates: start: 20080416, end: 20100607
  4. COZAAR [Concomitant]
     Indication: BLOOD PRESSURE INCREASED
     Dosage: 50 MG, QD
     Route: 048
     Dates: start: 19980414, end: 20100607
  5. PREDNISONE [Concomitant]
     Indication: PROPHYLAXIS AGAINST TRANSPLANT REJECTION
     Dosage: 5 MG/5 ML DAILY
     Route: 048
     Dates: start: 19970128
  6. ALLOPURINOL [Concomitant]
     Indication: GOUT
     Dosage: 100 MG, QD
     Route: 048
     Dates: start: 20080923, end: 20100607
  7. LANSOPRAZOLE [Concomitant]
     Indication: GASTROOESOPHAGEAL REFLUX DISEASE
     Dosage: 15 MG, QD
     Route: 048
     Dates: start: 20080818
  8. EPOGEN [Concomitant]
     Indication: ANAEMIA
     Dosage: 10000 UNITS MONTHLY
     Dates: start: 20070319, end: 20100607
  9. SULAR [Concomitant]
     Indication: HYPERTENSION
     Dosage: 8.5 MG, QD
     Route: 048
     Dates: start: 20090106, end: 20100621
  10. ESTRADIOL [Concomitant]
     Indication: RADICAL HYSTERECTOMY
     Dosage: 0.05 MG, QD
     Route: 062
     Dates: start: 19960610
  11. CATAPRES-TTS-1 [Concomitant]
     Indication: BLOOD PRESSURE INCREASED
     Dosage: 1 OTHER WEEKLY
     Dates: start: 20000404
  12. ROPINIROLE [Concomitant]
     Indication: RESTLESS LEGS SYNDROME
     Dosage: 1 MG, QD
     Route: 048
     Dates: start: 20100105, end: 20100607
  13. SENSIPAR [Concomitant]
     Indication: HYPOVITAMINOSIS
     Dosage: 30 MG AS NEEDED
     Dates: start: 20091112, end: 20100607
  14. ZETIA [Concomitant]
     Indication: BLOOD CHOLESTEROL INCREASED
     Dosage: 10 MG, QD
     Route: 048
     Dates: start: 20070516
  15. BYSTOLIC [Concomitant]
     Dosage: 10 MG, QD
     Route: 048
     Dates: start: 20080521, end: 20100629
  16. SODIUM BICARBONATE [Concomitant]
     Indication: NEPHROPATHY
     Dosage: 650 MG AS NEEDED
     Dates: start: 20100511

REACTIONS (1)
  - RENAL TRANSPLANT [None]
